FAERS Safety Report 22118176 (Version 2)
Quarter: 2023Q1

REPORT INFORMATION
  Report Type: Spontaneous
  Country: US (occurrence: US)
  Receive Date: 20230321
  Receipt Date: 20230325
  Transmission Date: 20230417
  Serious: No
  Sender: FDA-Public Use
  Company Number: US-UNITED THERAPEUTICS-UNT-2023-007398

PATIENT
  Age: 48 Year
  Sex: Male
  Weight: 90.703 kg

DRUGS (1)
  1. REMODULIN [Suspect]
     Active Substance: TREPROSTINIL
     Indication: Pulmonary arterial hypertension
     Dosage: 0.0225 ?G/KG, CONTINUING (REMUNITY SELF-FILL WITH 2.3 ML PER CASSETTE AT A PUMP RATE OF 25 MCL PER H
     Route: 058
     Dates: start: 20230308

REACTIONS (9)
  - Infusion site pain [Unknown]
  - Infusion site discolouration [Unknown]
  - Infusion site nodule [Unknown]
  - Nausea [Unknown]
  - Musculoskeletal discomfort [Unknown]
  - Headache [Unknown]
  - Pain in jaw [Unknown]
  - Infusion site irritation [Not Recovered/Not Resolved]
  - Infusion site erythema [Recovered/Resolved]

NARRATIVE: CASE EVENT DATE: 20230301
